FAERS Safety Report 8231318-2 (Version None)
Quarter: 2012Q1

REPORT INFORMATION
  Report Type: 
  Country: None (occurrence: None)
  Receive Date: 20120323
  Receipt Date: 20120315
  Transmission Date: 20120608
  Serious: Yes (Death, Other)
  Sender: FDA-Public Use
  Company Number: US-ALEXION PHARMACEUTICALS INC.-A201200493

PATIENT
  Age: 14 Year
  Sex: Female

DRUGS (1)
  1. SOLIRIS [Suspect]
     Indication: COAGULOPATHY
     Route: 042

REACTIONS (2)
  - CONVULSION [None]
  - DEATH [None]
